FAERS Safety Report 21396591 (Version 2)
Quarter: 2022Q4

REPORT INFORMATION
  Report Type: Report from Study
  Country: BR (occurrence: BR)
  Receive Date: 20220930
  Receipt Date: 20221024
  Transmission Date: 20230113
  Serious: Yes (Other)
  Sender: FDA-Public Use
  Company Number: BR-JNJFOC-20220826672

PATIENT
  Age: 50 Year
  Sex: Female
  Weight: 48 kg

DRUGS (3)
  1. INFLIXIMAB [Suspect]
     Active Substance: INFLIXIMAB
     Indication: Rheumatoid arthritis
     Route: 041
     Dates: start: 2013
  2. INFLIXIMAB [Suspect]
     Active Substance: INFLIXIMAB
     Dosage: 2 VIALS
     Route: 041
     Dates: start: 20220112
  3. INFLUENZA VIRUS VACCINE [Concomitant]
     Active Substance: INFLUENZA VIRUS VACCINE
     Indication: Antiviral prophylaxis
     Route: 065

REACTIONS (7)
  - Rheumatoid arthritis [Unknown]
  - COVID-19 [Recovering/Resolving]
  - Influenza [Unknown]
  - Weight decreased [Unknown]
  - Off label use [Unknown]
  - Drug ineffective [Unknown]
  - Product dose omission issue [Unknown]

NARRATIVE: CASE EVENT DATE: 20200201
